FAERS Safety Report 19276694 (Version 1)
Quarter: 2021Q2

REPORT INFORMATION
  Report Type: Spontaneous
  Country: TR (occurrence: TR)
  Receive Date: 20210519
  Receipt Date: 20210519
  Transmission Date: 20210717
  Serious: Yes (Other)
  Sender: FDA-Public Use
  Company Number: TR-PURDUE-USA-2021-0261045

PATIENT
  Age: 78 Month
  Sex: Male

DRUGS (2)
  1. NON?PMN METHYLPHENIDATE HYDROCHLORIDE [Suspect]
     Active Substance: METHYLPHENIDATE HYDROCHLORIDE
     Indication: ATTENTION DEFICIT HYPERACTIVITY DISORDER
     Dosage: 2.5 MG, DAILY
     Route: 065
  2. NON?PMN METHYLPHENIDATE HYDROCHLORIDE [Suspect]
     Active Substance: METHYLPHENIDATE HYDROCHLORIDE
     Indication: AUTISM SPECTRUM DISORDER
     Dosage: 5 MG/G, DAILY [TWO DIVIDED DOSES]
     Route: 065

REACTIONS (1)
  - Oculogyric crisis [Recovered/Resolved]
